FAERS Safety Report 26114785 (Version 1)
Quarter: 2025Q4

REPORT INFORMATION
  Report Type: Spontaneous
  Country: US (occurrence: None)
  Receive Date: 20251203
  Receipt Date: 20251203
  Transmission Date: 20260118
  Serious: Yes (Hospitalization)
  Sender: ENDO
  Company Number: US-ENDO USA, INC.-2025-002347

PATIENT
  Age: 65 Year
  Sex: Female

DRUGS (5)
  1. LAMOTRIGINE [Suspect]
     Active Substance: LAMOTRIGINE
     Indication: Major depression
     Dosage: UP TITRATED TO 150 MG TOTAL DAILY IN THE 3 WEEKS PRECEDING ADMISSION
     Route: 065
  2. LAMOTRIGINE [Suspect]
     Active Substance: LAMOTRIGINE
     Dosage: UNK UNKNOWN, UNKNOWN
     Route: 065
  3. PAROXETINE [Concomitant]
     Active Substance: PAROXETINE
     Indication: Major depression
     Dosage: 10 MILLIGRAM, UNKNOWN
     Route: 065
  4. PAROXETINE [Concomitant]
     Active Substance: PAROXETINE
     Dosage: 20 MILLIGRAM, UNKNOWN
     Route: 065
  5. BUPROPION [Concomitant]
     Active Substance: BUPROPION
     Indication: Major depression
     Dosage: UNK UNKNOWN, UNKNOWN
     Route: 065

REACTIONS (8)
  - Toxicity to various agents [Recovered/Resolved]
  - Asthenia [Recovering/Resolving]
  - Dizziness [Unknown]
  - Tremor [Recovering/Resolving]
  - Nausea [Unknown]
  - Hyperreflexia [Recovered/Resolved]
  - Drug titration error [Recovered/Resolved]
  - Off label use [Recovered/Resolved]
